FAERS Safety Report 9774650 (Version 1)
Quarter: 2013Q4

REPORT INFORMATION
  Report Type: Spontaneous
  Country: JP (occurrence: JP)
  Receive Date: 20131220
  Receipt Date: 20131220
  Transmission Date: 20140711
  Serious: Yes (Death, Other)
  Sender: FDA-Public Use
  Company Number: JP-ASTELLAS-2013JP013905

PATIENT
  Age: 65 Year
  Sex: Female

DRUGS (4)
  1. PROGRAF [Suspect]
     Indication: RHEUMATOID ARTHRITIS
     Dosage: 2 MG, UNKNOWN/D
     Route: 048
  2. PROGRAF [Suspect]
     Indication: INTERSTITIAL LUNG DISEASE
  3. PREDNISOLONE [Suspect]
     Indication: RHEUMATOID ARTHRITIS
     Dosage: 10 MG, UNKNOWN/D
     Route: 048
  4. PREDNISOLONE [Suspect]
     Indication: INTERSTITIAL LUNG DISEASE

REACTIONS (2)
  - Respiratory disorder [Fatal]
  - Aspergillus infection [Unknown]
